FAERS Safety Report 7796682-7 (Version None)
Quarter: 2011Q3

REPORT INFORMATION
  Report Type: 
  Country: None (occurrence: None)
  Receive Date: 20110930
  Receipt Date: 20110921
  Transmission Date: 20111222
  Serious: Yes (Other)
  Sender: FDA-Public Use
  Company Number: 11-001050

PATIENT
  Age: 77 Year
  Sex: Female
  Weight: 81.6 kg

DRUGS (5)
  1. OMEPRAZOLE [Concomitant]
  2. LOSARTAN POTASSIUM [Concomitant]
  3. ESTRACE [Suspect]
     Indication: VAGINAL DISORDER
     Dosage: 0.5 G, QD, VAGINAL
     Route: 067
     Dates: end: 20070101
  4. ESTRACE [Suspect]
     Dosage: 0.5 G, BIW, VAGINAL
     Route: 067
     Dates: start: 20070101, end: 20110901
  5. ZEGERID [Concomitant]

REACTIONS (1)
  - SPEECH DISORDER [None]
